FAERS Safety Report 20637663 (Version 1)
Quarter: 2022Q1

REPORT INFORMATION
  Report Type: Spontaneous
  Country: JP (occurrence: JP)
  Receive Date: 20220325
  Receipt Date: 20220325
  Transmission Date: 20220424
  Serious: Yes (Other)
  Sender: FDA-Public Use
  Company Number: JP-AZURITY PHARMACEUTICALS, INC.-JP-2022ARB000759

PATIENT

DRUGS (12)
  1. METHOTREXATE [Suspect]
     Active Substance: METHOTREXATE
     Indication: Enteropathy-associated T-cell lymphoma
     Dosage: 15 MG/M2 ON DAY 1
  2. METHOTREXATE [Suspect]
     Active Substance: METHOTREXATE
     Indication: Prophylaxis against graft versus host disease
     Dosage: 10 MG/M2 ON DAYS 3 AND 6
  3. METHOTREXATE [Suspect]
     Active Substance: METHOTREXATE
     Dosage: UNK, THREE CYCLES
  4. PROCARBAZINE [Suspect]
     Active Substance: PROCARBAZINE
     Indication: Enteropathy-associated T-cell lymphoma
     Dosage: UNK, THREE CYCLES
  5. VINCRISTINE [Suspect]
     Active Substance: VINCRISTINE
     Indication: Enteropathy-associated T-cell lymphoma
     Dosage: UNK, THREE CYCLES
  6. GEMCITABINE [Concomitant]
     Active Substance: GEMCITABINE
     Indication: Intestinal T-cell lymphoma stage IV
     Dosage: UNK, FOUR CYCLES
  7. DEXAMETHASONE [Concomitant]
     Active Substance: DEXAMETHASONE
     Indication: Intestinal T-cell lymphoma stage IV
     Dosage: UNK, FOUR CYCLES
  8. CISPLATIN [Concomitant]
     Active Substance: CISPLATIN
     Indication: Intestinal T-cell lymphoma stage IV
     Dosage: UNK, FOUR CYCLES
  9. CYTARABINE [Concomitant]
     Active Substance: CYTARABINE
     Indication: Bone marrow conditioning regimen
     Dosage: 2 G/M2 TWICE DAILY FROM DAY-5 TO -4
  10. CYCLOPHOSPHAMIDE [Concomitant]
     Active Substance: CYCLOPHOSPHAMIDE
     Indication: Bone marrow conditioning regimen
     Dosage: 60 MG/KG, QD FROM DAY-3 TO -2
  11. TACROLIMUS [Concomitant]
     Active Substance: TACROLIMUS
     Indication: Prophylaxis against graft versus host disease
     Dosage: 0.02 MG/KG, FROM DAY 1
  12. DIFLUPREDNATE [Concomitant]
     Active Substance: DIFLUPREDNATE
     Indication: Rash
     Dosage: UNK, QD

REACTIONS (2)
  - Febrile neutropenia [Unknown]
  - Pyelonephritis [Unknown]
